FAERS Safety Report 24920580 (Version 1)
Quarter: 2025Q1

REPORT INFORMATION
  Report Type: Report from Study
  Country: US (occurrence: US)
  Receive Date: 20250204
  Receipt Date: 20250204
  Transmission Date: 20250408
  Serious: No
  Sender: EXELIXIS
  Company Number: US-EXELIXIS-CABO-24074281

PATIENT
  Sex: Male

DRUGS (1)
  1. CABOMETYX [Suspect]
     Active Substance: CABOZANTINIB S-MALATE
     Indication: Renal cancer
     Dosage: 60 MG, QD
     Route: 048

REACTIONS (6)
  - Alopecia [Unknown]
  - Diarrhoea [Unknown]
  - Constipation [Recovering/Resolving]
  - Muscle spasms [Unknown]
  - Muscle strain [Unknown]
  - Musculoskeletal chest pain [Unknown]
